FAERS Safety Report 25984805 (Version 1)
Quarter: 2025Q4

REPORT INFORMATION
  Report Type: Spontaneous
  Country: US (occurrence: US)
  Receive Date: 20251031
  Receipt Date: 20251031
  Transmission Date: 20260118
  Serious: No
  Sender: MERCK SHARP & DOHME LLC
  Company Number: US-009507513-2343459

PATIENT
  Age: 64 Year
  Sex: Male

DRUGS (1)
  1. JANUMET [Suspect]
     Active Substance: METFORMIN HYDROCHLORIDE\SITAGLIPTIN PHOSPHATE
     Dosage: 50 MG TWICE A DAY. STRENGTH: 50/1000 (UNITS NOT PROVIDED)
     Route: 048
     Dates: start: 20251010

REACTIONS (4)
  - Product packaging quantity issue [Unknown]
  - No adverse event [Unknown]
  - Product dose omission issue [Unknown]
  - Product dispensing error [Unknown]

NARRATIVE: CASE EVENT DATE: 20251001
